FAERS Safety Report 7315097-9 (Version None)
Quarter: 2011Q1

REPORT INFORMATION
  Report Type: 
  Country: None (occurrence: None)
  Receive Date: 20110225
  Receipt Date: 20100415
  Transmission Date: 20110831
  Serious: No
  Sender: FDA-Public Use
  Company Number: US-MYLANLABS-2010S1006305

PATIENT
  Age: 29 Year
  Sex: Male

DRUGS (7)
  1. CLARAVIS [Suspect]
     Route: 048
  2. VITAMIN B [Concomitant]
  3. AMNESTEEM [Suspect]
     Route: 048
     Dates: start: 20100201, end: 20100323
  4. CLARAVIS [Suspect]
     Indication: ACNE
     Route: 048
  5. AMNESTEEM [Suspect]
     Indication: ACNE
     Route: 048
     Dates: start: 20090101, end: 20100201
  6. FISH OIL [Concomitant]
  7. ASCORBIC ACID [Concomitant]

REACTIONS (4)
  - PAIN [None]
  - MOOD SWINGS [None]
  - IRRITABILITY [None]
  - ARTHRALGIA [None]
